FAERS Safety Report 8458391-0 (Version None)
Quarter: 2012Q2

REPORT INFORMATION
  Report Type: 
  Country: None (occurrence: None)
  Receive Date: 20120622
  Receipt Date: 20120612
  Transmission Date: 20120825
  Serious: Yes (Hospitalization)
  Sender: FDA-Public Use
  Company Number: AT-UCBSA-059581

PATIENT
  Age: 54 Year
  Sex: Female
  Weight: 90 kg

DRUGS (1)
  1. CIMZIA [Suspect]
     Indication: RHEUMATOID ARTHRITIS
     Dosage: 200 MG, 2 IN 1 DAY
     Dates: start: 20120424

REACTIONS (4)
  - PRURITUS [None]
  - HYPERSENSITIVITY [None]
  - ERYTHEMA [None]
  - EYELID OEDEMA [None]
